FAERS Safety Report 5986075-7 (Version None)
Quarter: 2008Q4

REPORT INFORMATION
  Report Type: 
  Country: None (occurrence: None)
  Receive Date: 20081205
  Receipt Date: 20081205
  Transmission Date: 20090506
  Serious: No
  Sender: FDA-Public Use
  Company Number: None

PATIENT
  Age: 45 Year
  Sex: Male
  Weight: 104.3273 kg

DRUGS (3)
  1. MIRAPEX [Suspect]
     Indication: MOVEMENT DISORDER
     Dosage: 1MG BID PO
     Route: 048
     Dates: start: 20070815, end: 20070917
  2. MIRAPEX [Suspect]
     Indication: RESTLESS LEGS SYNDROME
     Dosage: 1MG BID PO
     Route: 048
     Dates: start: 20070815, end: 20070917
  3. XANAX [Concomitant]

REACTIONS (3)
  - CEREBROVASCULAR ACCIDENT [None]
  - INSOMNIA [None]
  - PAIN IN EXTREMITY [None]
